FAERS Safety Report 5919111-4 (Version None)
Quarter: 2008Q4

REPORT INFORMATION
  Report Type: 
  Country: None (occurrence: None)
  Receive Date: 20081015
  Receipt Date: 20081007
  Transmission Date: 20090506
  Serious: Yes (Other)
  Sender: FDA-Public Use
  Company Number: US-JNJFOC-20081002122

PATIENT
  Age: 44 Year
  Sex: Male
  Weight: 73.48 kg

DRUGS (6)
  1. EXTRA STRENGTH TYLENOL [Suspect]
     Route: 048
  2. EXTRA STRENGTH TYLENOL [Suspect]
     Indication: PAIN
     Dosage: 1000-1500MG EVERY 6 HOURS
     Route: 048
  3. WELLBUTRIN [Concomitant]
     Indication: ANXIETY
  4. XANAX [Concomitant]
     Indication: INSOMNIA
  5. XANAX [Concomitant]
     Indication: ANXIETY
  6. MOTRIN [Concomitant]

REACTIONS (3)
  - HEPATOMEGALY [None]
  - INTENTIONAL OVERDOSE [None]
  - WEIGHT DECREASED [None]
